FAERS Safety Report 9168606 (Version 1)
Quarter: 2013Q1

REPORT INFORMATION
  Report Type: Spontaneous
  Country: US (occurrence: US)
  Receive Date: 20130318
  Receipt Date: 20130318
  Transmission Date: 20140127
  Serious: Yes (Other)
  Sender: FDA-Public Use
  Company Number: US-PFIZER INC-2013089068

PATIENT
  Age: 51 Year
  Sex: Female
  Weight: 92.97 kg

DRUGS (4)
  1. LYRICA [Suspect]
     Indication: NERVE INJURY
     Dosage: 50 MG, 2X/DAY
  2. LYRICA [Suspect]
     Indication: MUSCLE SPASMS
     Dosage: 50 MG, 1X/DAY
  3. LYRICA [Suspect]
     Indication: BACK PAIN
  4. IBUPROFEN [Concomitant]
     Indication: HEADACHE
     Dosage: UNK, AS NEEDED

REACTIONS (1)
  - Bone neoplasm [Unknown]
